FAERS Safety Report 12001416 (Version 1)
Quarter: 2016Q1

REPORT INFORMATION
  Report Type: Spontaneous
  Country: CH (occurrence: CH)
  Receive Date: 20160204
  Receipt Date: 20160204
  Transmission Date: 20160526
  Serious: No
  Sender: FDA-Public Use
  Company Number: PHHY2016CH014458

PATIENT
  Age: 23 Year
  Sex: Male

DRUGS (3)
  1. NILOTINIB [Suspect]
     Active Substance: NILOTINIB
     Indication: PRODUCT USED FOR UNKNOWN INDICATION
     Route: 065
  2. IMATINIB [Suspect]
     Active Substance: IMATINIB
     Indication: PRODUCT USED FOR UNKNOWN INDICATION
     Route: 065
  3. DASATINIB [Suspect]
     Active Substance: DASATINIB
     Indication: PRODUCT USED FOR UNKNOWN INDICATION
     Route: 065

REACTIONS (2)
  - Drug ineffective [Unknown]
  - Drug intolerance [Unknown]
